FAERS Safety Report 5709721-1 (Version None)
Quarter: 2008Q2

REPORT INFORMATION
  Report Type: 
  Country: None (occurrence: None)
  Receive Date: 20080418
  Receipt Date: 20070516
  Transmission Date: 20081010
  Serious: Yes (Other)
  Sender: FDA-Public Use
  Company Number: US-ASTRAZENECA-2007UW03357

PATIENT
  Age: 86 Year
  Sex: Male

DRUGS (2)
  1. CASODEX [Suspect]
     Indication: PROSTATE CANCER
     Route: 048
     Dates: start: 20070101
  2. ZOLADEX [Concomitant]
     Route: 058

REACTIONS (5)
  - ARTHRITIS [None]
  - BACK PAIN [None]
  - DYSPNOEA [None]
  - HOT FLUSH [None]
  - INSOMNIA [None]
